FAERS Safety Report 13086120 (Version 1)
Quarter: 2017Q1

REPORT INFORMATION
  Report Type: Report from Study
  Country: None (occurrence: US)
  Receive Date: 20170104
  Receipt Date: 20170104
  Transmission Date: 20170428
  Serious: Yes (Other)
  Sender: FDA-Public Use
  Company Number: US-ENDO PHARMACEUTICALS INC.-2016-006183

PATIENT
  Age: 63 Year
  Sex: Male
  Weight: 88.6 kg

DRUGS (3)
  1. XIAFLEX [Suspect]
     Active Substance: COLLAGENASE CLOSTRIDIUM HISTOLYTICUM
     Indication: PEYRONIE^S DISEASE
     Route: 026
     Dates: start: 20160728
  2. XIAFLEX [Suspect]
     Active Substance: COLLAGENASE CLOSTRIDIUM HISTOLYTICUM
     Route: 026
     Dates: start: 20160922, end: 20160922
  3. XIAFLEX [Suspect]
     Active Substance: COLLAGENASE CLOSTRIDIUM HISTOLYTICUM
     Route: 026
     Dates: start: 20160726

REACTIONS (6)
  - Incorrect dose administered [Recovered/Resolved]
  - Drug hypersensitivity [Recovered/Resolved]
  - Angioedema [Recovered/Resolved]
  - Penile pain [Recovering/Resolving]
  - Penile swelling [Recovering/Resolving]
  - Penile contusion [Recovering/Resolving]

NARRATIVE: CASE EVENT DATE: 20160726
